FAERS Safety Report 23105826 (Version 1)
Quarter: 2023Q4

REPORT INFORMATION
  Report Type: Spontaneous
  Country: US (occurrence: US)
  Receive Date: 20231025
  Receipt Date: 20231025
  Transmission Date: 20240109
  Serious: No
  Sender: FDA-Public Use
  Company Number: US-002147023-NVSC2023US227353

PATIENT
  Age: 74 Year
  Sex: Female

DRUGS (1)
  1. LEQVIO [Suspect]
     Active Substance: INCLISIRAN SODIUM
     Indication: Low density lipoprotein
     Dosage: UNK, (OTHER, 1ST INJECTION, 3 MONTHS, 6 MONTHS THEREAFTER)
     Route: 058

REACTIONS (3)
  - Frequent bowel movements [Not Recovered/Not Resolved]
  - Constipation [Unknown]
  - Gastrointestinal disorder [Unknown]
